FAERS Safety Report 5997294-8 (Version None)
Quarter: 2008Q4

REPORT INFORMATION
  Report Type: 
  Country: None (occurrence: None)
  Receive Date: 20081204
  Receipt Date: 20081124
  Transmission Date: 20090506
  Serious: Yes (Hospitalization)
  Sender: FDA-Public Use
  Company Number: WAES 0809USA01708

PATIENT
  Age: 79 Year
  Sex: Female
  Weight: 63.9572 kg

DRUGS (18)
  1. VORISNOSTAT [Suspect]
     Indication: ACUTE MYELOID LEUKAEMIA
  2. SPRYCEL [Suspect]
     Indication: ACUTE MYELOID LEUKAEMIA
     Dosage: 33.8 MG/DAILY/IV
     Route: 042
     Dates: start: 20080827, end: 20080831
  3. LOPRESSOR [Concomitant]
  4. PROTONIX [Concomitant]
  5. ALLOPURINOL [Concomitant]
  6. CHLORHEXIDINE GLUCONATE [Concomitant]
  7. HYDROCHLOROTHIAZIDE [Concomitant]
  8. HYDROXYUREA [Concomitant]
  9. LEVOTHYROXINE SODIUM [Concomitant]
  10. MAGNESIUM SULFATE [Concomitant]
  11. NITROGLYCERIN [Concomitant]
  12. ONDANSETRON [Concomitant]
  13. PANTOPRAZOLE [Concomitant]
  14. POTASSIUM PHOSPHATES [Concomitant]
  15. SIMETHICONE [Concomitant]
  16. VANCOMYCIN [Concomitant]
  17. VITAMINS [Concomitant]
  18. VORINAZOLE [Concomitant]

REACTIONS (11)
  - CULTURE URINE POSITIVE [None]
  - ENTEROCOCCAL BACTERAEMIA [None]
  - ENTEROCOCCAL INFECTION [None]
  - FEBRILE NEUTROPENIA [None]
  - HIATUS HERNIA [None]
  - HYDRONEPHROSIS [None]
  - HYPOKALAEMIA [None]
  - NEPHROLITHIASIS [None]
  - PATHOGEN RESISTANCE [None]
  - PERICARDIAL EFFUSION [None]
  - PNEUMONIA FUNGAL [None]
